FAERS Safety Report 15359368 (Version 2)
Quarter: 2018Q3

REPORT INFORMATION
  Report Type: Report from Study
  Country: None (occurrence: RO)
  Receive Date: 20180907
  Receipt Date: 20180914
  Transmission Date: 20181010
  Serious: Yes (Hospitalization, Other)
  Sender: FDA-Public Use
  Company Number: RO-ABBVIE-18K-135-2471923-00

PATIENT
  Age: 62 Year
  Sex: Male

DRUGS (7)
  1. HUMIRA [Suspect]
     Active Substance: ADALIMUMAB
     Indication: ANKYLOSING SPONDYLITIS
     Route: 058
     Dates: start: 20090815, end: 201203
  2. MILGAMMA N [Concomitant]
     Active Substance: BENFOTIAMINE\CYANOCOBALAMIN\PYRIDOXINE HYDROCHLORIDE
     Indication: ANKYLOSING SPONDYLITIS
     Route: 048
     Dates: start: 2018
  3. HELIDES [Concomitant]
     Indication: HELICOBACTER INFECTION
     Route: 048
  4. HEPATOPROTECT [Concomitant]
     Indication: PROPHYLAXIS
     Route: 048
     Dates: start: 2017
  5. PRAMIPEXOLE. [Concomitant]
     Active Substance: PRAMIPEXOLE
     Indication: PARKINSON^S DISEASE
     Route: 048
  6. ISICOM [Concomitant]
     Active Substance: CARBIDOPA\LEVODOPA
     Indication: PARKINSON^S DISEASE
     Route: 048
  7. HUMIRA [Suspect]
     Active Substance: ADALIMUMAB
     Route: 058
     Dates: start: 2012, end: 20180820

REACTIONS (18)
  - Panic attack [Recovered/Resolved]
  - Renal pain [Recovered/Resolved]
  - Oedema peripheral [Not Recovered/Not Resolved]
  - Helicobacter infection [Recovered/Resolved]
  - Dyspnoea [Not Recovered/Not Resolved]
  - Silicosis [Recovering/Resolving]
  - Lung disorder [Not Recovered/Not Resolved]
  - Tuberculin test positive [Not Recovered/Not Resolved]
  - Tremor [Recovered/Resolved]
  - Headache [Not Recovered/Not Resolved]
  - Urinary tract obstruction [Recovered/Resolved]
  - Nephrolithiasis [Recovered/Resolved]
  - Tuberculosis [Recovered/Resolved]
  - Pulmonary haemosiderosis [Recovering/Resolving]
  - Hepatic steatosis [Not Recovered/Not Resolved]
  - Chest pain [Not Recovered/Not Resolved]
  - Heart rate increased [Not Recovered/Not Resolved]
  - Angina pectoris [Not Recovered/Not Resolved]

NARRATIVE: CASE EVENT DATE: 2010
